FAERS Safety Report 12943612 (Version 2)
Quarter: 2016Q4

REPORT INFORMATION
  Report Type: Spontaneous
  Country: US (occurrence: US)
  Receive Date: 20161115
  Receipt Date: 20161220
  Transmission Date: 20170207
  Serious: No
  Sender: FDA-Public Use
  Company Number: US-BAYER-2016-217900

PATIENT
  Sex: Female

DRUGS (4)
  1. MULTIVITAMINS [Concomitant]
     Active Substance: VITAMINS
  2. SKYLA [Suspect]
     Active Substance: LEVONORGESTREL
     Indication: MULTIPLE SCLEROSIS
     Dosage: 14 MCG/24HR, CONT
     Route: 015
  3. VITAMIN B12 [Concomitant]
     Active Substance: CYANOCOBALAMIN
  4. VITAMIN D [Concomitant]
     Active Substance: CHOLECALCIFEROL

REACTIONS (5)
  - Nausea [None]
  - Abdominal discomfort [None]
  - Depressed mood [None]
  - Depression [None]
  - Off label use [None]
